FAERS Safety Report 15960484 (Version 1)
Quarter: 2019Q1

REPORT INFORMATION
  Report Type: Spontaneous
  Country: US (occurrence: US)
  Receive Date: 20190213
  Receipt Date: 20190213
  Transmission Date: 20190417
  Serious: Yes (Life-Threatening, Hospitalization, Disabling, Other)
  Sender: FDA-Public Use
  Company Number: None

PATIENT
  Age: 60 Year
  Sex: Female
  Weight: 65.25 kg

DRUGS (5)
  1. LYRICA [Concomitant]
     Active Substance: PREGABALIN
  2. TRAMADOL. [Concomitant]
     Active Substance: TRAMADOL
  3. ESTRADIOL. [Concomitant]
     Active Substance: ESTRADIOL
  4. XANAX [Concomitant]
     Active Substance: ALPRAZOLAM
  5. CIPROFLOXACIN. [Suspect]
     Active Substance: CIPROFLOXACIN
     Indication: URINARY TRACT INFECTION
     Dosage: ?          QUANTITY:20 TABLET(S);?
     Route: 048
     Dates: start: 20160118, end: 20160119

REACTIONS (8)
  - Skin disorder [None]
  - Hair disorder [None]
  - Hypoacusis [None]
  - Dysgeusia [None]
  - Nail disorder [None]
  - Acute kidney injury [None]
  - Tendon pain [None]
  - Parosmia [None]

NARRATIVE: CASE EVENT DATE: 20160120
